FAERS Safety Report 5086475-6 (Version None)
Quarter: 2006Q3

REPORT INFORMATION
  Report Type: 
  Country: None (occurrence: None)
  Receive Date: 20060703
  Receipt Date: 20051208
  Transmission Date: 20061208
  Serious: No
  Sender: FDA-Public Use
  Company Number: 2005S1011831

PATIENT
  Age: 58 Year
  Sex: Male

DRUGS (7)
  1. CLOZAPINE [Suspect]
     Indication: SCHIZOPHRENIA
     Dosage: 200 MG;QD;ORAL
     Route: 048
  2. PANTOPRAZOLE SODIUM [Concomitant]
  3. ATORVASTATIN CALCIUM [Concomitant]
  4. ARIPIPRAZOLE [Concomitant]
  5. DESMOPRESSIN [Concomitant]
  6. CICLOPIROX OLAMINE [Concomitant]
  7. CLOBETASOL PROPIONATE [Concomitant]

REACTIONS (1)
  - LEUKOPENIA [None]
